FAERS Safety Report 14047867 (Version 5)
Quarter: 2018Q1

REPORT INFORMATION
  Report Type: Report from Study
  Country: US (occurrence: US)
  Receive Date: 20171005
  Receipt Date: 20180205
  Transmission Date: 20180508
  Serious: Yes (Other)
  Sender: FDA-Public Use
  Company Number: US-ACTELION-A-US2017-159200

PATIENT
  Age: 69 Year
  Sex: Female

DRUGS (5)
  1. TRACLEER [Suspect]
     Active Substance: BOSENTAN
     Indication: PULMONARY HYPERTENSION
     Dosage: 62.5 MG, BID
     Route: 048
  2. TRACLEER [Suspect]
     Active Substance: BOSENTAN
     Dosage: 125 MG, BID
     Route: 048
  3. ADCIRCA [Concomitant]
     Active Substance: TADALAFIL
  4. BACTRIM [Suspect]
     Active Substance: SULFAMETHOXAZOLE\TRIMETHOPRIM
     Indication: PRODUCT USED FOR UNKNOWN INDICATION
     Route: 065
  5. SILDENAFIL CITRATE. [Concomitant]
     Active Substance: SILDENAFIL CITRATE

REACTIONS (12)
  - Urticaria [Unknown]
  - Infection [Unknown]
  - Anxiety [Unknown]
  - Sinusitis [Unknown]
  - Malaise [Unknown]
  - Ear infection [Unknown]
  - Hypertension [Unknown]
  - Fatigue [Unknown]
  - Flushing [Unknown]
  - Nasal congestion [Unknown]
  - Presyncope [Unknown]
  - Hypersensitivity [Unknown]
